FAERS Safety Report 6955886-3 (Version None)
Quarter: 2010Q3

REPORT INFORMATION
  Report Type: 
  Country: None (occurrence: None)
  Receive Date: 20100826
  Receipt Date: 20100812
  Transmission Date: 20110219
  Serious: Yes (Other)
  Sender: FDA-Public Use
  Company Number: DKLU1064424

PATIENT

DRUGS (2)
  1. COSMEGEN [Suspect]
     Indication: MALIGNANT MELANOMA
     Dosage: 1 MG MILLIGRAM(S), INTRAVENOUS BOLUS; 0.5 MG MILLIGRAM(S), INTRAVENOUS BOLUS
     Route: 040
  2. MELPHALAN HYDROCHLORIDE [Suspect]
     Indication: MALIGNANT MELANOMA
     Dosage: 1.3 MG/KG MILLIGRAM(S)/KILOGRAM, INTRA-ARTERIAL; 0.7 MG/KG MILLIGRAM(S)/KILOGRAM, INTRA-ARTERIAL
     Route: 013

REACTIONS (1)
  - THERAPEUTIC AGENT TOXICITY [None]
